FAERS Safety Report 16807566 (Version 1)
Quarter: 2019Q3

REPORT INFORMATION
  Report Type: Spontaneous
  Country: HU (occurrence: HU)
  Receive Date: 20190914
  Receipt Date: 20190914
  Transmission Date: 20191005
  Serious: Yes (Other)
  Sender: FDA-Public Use
  Company Number: HU-AMGEN-HUNSP2019147521

PATIENT
  Sex: Male

DRUGS (5)
  1. VECTIBIX [Suspect]
     Active Substance: PANITUMUMAB
     Dosage: UNK, (DOSE REDUCED)
     Route: 065
  2. DOXYCYCLINE. [Concomitant]
     Active Substance: DOXYCYCLINE
     Indication: PURULENCE
     Dosage: 100 MILLIGRAM, (DAILY 1 X 100 MG, WHEN SYMPTOMS WORSENED, DAILY 2X 100 MG)
  3. VECTIBIX [Suspect]
     Active Substance: PANITUMUMAB
     Indication: PRODUCT USED FOR UNKNOWN INDICATION
     Dosage: UNK
     Route: 065
  4. DOXYCYCLINE. [Concomitant]
     Active Substance: DOXYCYCLINE
     Indication: PURPURA
  5. DOXYCYCLINE. [Concomitant]
     Active Substance: DOXYCYCLINE
     Indication: SKIN REACTION

REACTIONS (2)
  - Purulence [Not Recovered/Not Resolved]
  - Purpura [Not Recovered/Not Resolved]
